FAERS Safety Report 9841601 (Version 1)
Quarter: 2013Q4

REPORT INFORMATION
  Report Type: Spontaneous
  Country: US (occurrence: None)
  Receive Date: 20131223
  Receipt Date: 20131223
  Transmission Date: 20140711
  Serious: Yes (Other)
  Sender: FDA-Public Use
  Company Number: 221931LEO

PATIENT
  Age: 56 Year
  Sex: Female

DRUGS (3)
  1. PICATO GEL [Suspect]
     Indication: ACTINIC KERATOSIS
     Dosage: (1 IN 1 D), TOPICAL
     Route: 061
  2. CRESTOR (ROSUVASTATIN) [Concomitant]
  3. MULTIVITAMIN [Concomitant]

REACTIONS (9)
  - Oral discomfort [None]
  - Application site pruritus [None]
  - Application site pain [None]
  - Application site pain [None]
  - Application site erythema [None]
  - Application site exfoliation [None]
  - Application site swelling [None]
  - Drug administered at inappropriate site [None]
  - Inappropriate schedule of drug administration [None]
